FAERS Safety Report 15838138 (Version 1)
Quarter: 2019Q1

REPORT INFORMATION
  Report Type: Spontaneous
  Country: US (occurrence: US)
  Receive Date: 20190117
  Receipt Date: 20190117
  Transmission Date: 20190417
  Serious: Yes (Other)
  Sender: FDA-Public Use
  Company Number: US-PFIZER INC-2019020943

PATIENT
  Age: 42 Year
  Sex: Female
  Weight: 77.11 kg

DRUGS (1)
  1. GABAPENTIN. [Suspect]
     Active Substance: GABAPENTIN
     Indication: DIABETIC NEUROPATHY
     Dosage: 1800 MG, DAILY (1800 MG A DAY )
     Route: 048
     Dates: start: 201310, end: 201405

REACTIONS (10)
  - Upper limb fracture [Unknown]
  - Drug level above therapeutic [Unknown]
  - Malaise [Unknown]
  - Drug ineffective for unapproved indication [Unknown]
  - Blood pressure decreased [Unknown]
  - Loss of consciousness [Unknown]
  - Ankle fracture [Unknown]
  - Fall [Unknown]
  - Dizziness [Unknown]
  - Dysstasia [Unknown]
